FAERS Safety Report 6898559-8 (Version None)
Quarter: 2010Q3

REPORT INFORMATION
  Report Type: 
  Country: None (occurrence: None)
  Receive Date: 20100802
  Receipt Date: 20071030
  Transmission Date: 20110219
  Serious: Yes (Other)
  Sender: FDA-Public Use
  Company Number: US-PFIZER INC-2007091860

PATIENT
  Sex: Female
  Weight: 46.7 kg

DRUGS (14)
  1. LYRICA [Suspect]
     Indication: HERPES ZOSTER
     Route: 048
     Dates: start: 20071029
  2. LOTENSIN [Concomitant]
  3. LIPITOR [Concomitant]
  4. PREVACID [Concomitant]
  5. ALL OTHER THERAPEUTIC PRODUCTS [Concomitant]
  6. STROVITE [Concomitant]
  7. MIRALAX [Concomitant]
  8. CALCIUM [Concomitant]
  9. CYMBALTA [Concomitant]
  10. ULTRAM [Concomitant]
     Indication: PAIN
  11. WARFARIN SODIUM [Concomitant]
  12. TYLENOL [Concomitant]
  13. TERIPARATIDE [Concomitant]
  14. LAXATIVES [Concomitant]

REACTIONS (1)
  - HALLUCINATION, VISUAL [None]
